FAERS Safety Report 8051067-3 (Version None)
Quarter: 2012Q1

REPORT INFORMATION
  Report Type: 
  Country: None (occurrence: None)
  Receive Date: 20120117
  Receipt Date: 20120111
  Transmission Date: 20120608
  Serious: Yes (Other)
  Sender: FDA-Public Use
  Company Number: PHHY2012JP002804

PATIENT

DRUGS (1)
  1. NEORAL [Suspect]
     Dosage: UNK UKN, UNK
     Route: 048

REACTIONS (1)
  - SHOCK [None]
